FAERS Safety Report 4633867-2 (Version None)
Quarter: 2005Q2

REPORT INFORMATION
  Report Type: 
  Country: None (occurrence: None)
  Receive Date: 20050325
  Receipt Date: 20050121
  Transmission Date: 20051028
  Serious: No
  Sender: FDA-Public Use
  Company Number: USA041285839

PATIENT
  Age: 73 Year
  Sex: Female
  Weight: 75 kg

DRUGS (6)
  1. FORTEO [Suspect]
     Indication: OSTEOPOROSIS
     Dosage: 20 UG OTHER
     Route: 050
     Dates: start: 20041203
  2. CALCIUM GLUCONATE [Concomitant]
  3. VITAMIN D [Concomitant]
  4. MULTI-VITAMINS [Concomitant]
  5. THYROID TAB [Concomitant]
  6. HYDROCHLOROTHIAZIDE [Concomitant]

REACTIONS (7)
  - BREAST PAIN [None]
  - CHEST PAIN [None]
  - DYSPHONIA [None]
  - MEDICATION ERROR [None]
  - NAUSEA [None]
  - OVERDOSE [None]
  - PRURITUS [None]
